FAERS Safety Report 4525735-1 (Version None)
Quarter: 2004Q4

REPORT INFORMATION
  Report Type: 
  Country: None (occurrence: None)
  Receive Date: 20041116
  Receipt Date: 20040811
  Transmission Date: 20050328
  Serious: No
  Sender: FDA-Public Use
  Company Number: S04-USA-04004-01

PATIENT

DRUGS (11)
  1. NAMENDA [Suspect]
     Indication: DEMENTIA ALZHEIMER'S TYPE
     Dosage: 10 MG QD PO
     Route: 048
     Dates: start: 20040501, end: 20040517
  2. NAMENDA [Suspect]
     Indication: DEMENTIA ALZHEIMER'S TYPE
     Dosage: 5 MG QD PO
     Route: 048
     Dates: start: 20040501, end: 20040517
  3. NAMENDA [Suspect]
     Indication: DEMENTIA ALZHEIMER'S TYPE
     Dates: start: 20040501, end: 20040501
  4. ARICEPT [Concomitant]
  5. CELEBREX [Concomitant]
  6. OXYCONTIN [Concomitant]
  7. ZOLOFT [Concomitant]
  8. SYNTHROID [Concomitant]
  9. PRILOSEC [Concomitant]
  10. MIRALAX [Concomitant]
  11. FOLIC ACID [Concomitant]

REACTIONS (1)
  - EXTRAPYRAMIDAL DISORDER [None]
